FAERS Safety Report 9053906 (Version 1)
Quarter: 2013Q1

REPORT INFORMATION
  Report Type: Spontaneous
  Country: US (occurrence: None)
  Receive Date: 20130130
  Receipt Date: 20130130
  Transmission Date: 20140127
  Serious: Yes (Other)
  Sender: FDA-Public Use
  Company Number: None

PATIENT
  Age: 55 Year
  Sex: Female

DRUGS (1)
  1. MONTELUKAST [Suspect]
     Route: 048
     Dates: start: 20121009, end: 20130118

REACTIONS (1)
  - Drug ineffective [None]
